FAERS Safety Report 7892975-3 (Version None)
Quarter: 2011Q4

REPORT INFORMATION
  Report Type: 
  Country: None (occurrence: None)
  Receive Date: 20111104
  Receipt Date: 20111011
  Transmission Date: 20120403
  Serious: Yes (Hospitalization)
  Sender: FDA-Public Use
  Company Number: ES-JNJFOC-20110808182

PATIENT
  Age: 38 Year
  Sex: Female
  Weight: 51 kg

DRUGS (6)
  1. REMICADE [Suspect]
     Indication: CROHN'S DISEASE
     Route: 042
     Dates: start: 20110712
  2. METRONIDAZOLE [Concomitant]
     Indication: CROHN'S DISEASE
     Dates: start: 20110816
  3. CIPRO [Concomitant]
     Indication: CROHN'S DISEASE
     Dates: start: 20110816
  4. CORTICOSTEROID NOS [Concomitant]
     Indication: CROHN'S DISEASE
     Dates: start: 20110816
  5. IRON [Concomitant]
     Indication: ANAEMIA
     Dates: start: 20100119
  6. AZATHIOPRINE [Concomitant]
     Indication: CROHN'S DISEASE
     Dates: start: 20070629

REACTIONS (1)
  - TUBERCULOSIS [None]
